FAERS Safety Report 9885998 (Version 1)
Quarter: 2014Q1

REPORT INFORMATION
  Report Type: Spontaneous
  Country: JP (occurrence: JP)
  Receive Date: 20140210
  Receipt Date: 20140210
  Transmission Date: 20141002
  Serious: Yes (Hospitalization)
  Sender: FDA-Public Use
  Company Number: JP-GLAXOSMITHKLINE-B0967298A

PATIENT
  Age: 7 Decade
  Sex: Female

DRUGS (3)
  1. LAMICTAL [Suspect]
     Indication: BIPOLAR DISORDER
     Dosage: 25MG PER DAY
     Route: 048
     Dates: start: 201302, end: 201303
  2. LIMAS [Suspect]
     Indication: BIPOLAR DISORDER
     Route: 048
  3. ABILIFY [Concomitant]
     Indication: BIPOLAR DISORDER
     Route: 048

REACTIONS (3)
  - Altered state of consciousness [Recovering/Resolving]
  - Rash [Recovering/Resolving]
  - Renal disorder [Unknown]
